FAERS Safety Report 7600332-X (Version None)
Quarter: 2011Q3

REPORT INFORMATION
  Report Type: 
  Country: None (occurrence: None)
  Receive Date: 20110706
  Receipt Date: 20110706
  Transmission Date: 20111222
  Serious: Yes (Other)
  Sender: FDA-Public Use
  Company Number: None

PATIENT
  Sex: Female
  Weight: 149.687 kg

DRUGS (1)
  1. MYCOPHENOLATE [Suspect]
     Indication: RENAL TRANSPLANT
     Dosage: 500 MG 2X/DAY PO 8 MONTHS AGO
     Route: 048

REACTIONS (3)
  - NAUSEA [None]
  - HEADACHE [None]
  - VOMITING [None]
